FAERS Safety Report 4530649-7 (Version None)
Quarter: 2004Q4

REPORT INFORMATION
  Report Type: 
  Country: None (occurrence: None)
  Receive Date: 20041217
  Receipt Date: 20041209
  Transmission Date: 20050328
  Serious: Yes (Death, Hospitalization)
  Sender: FDA-Public Use
  Company Number: US-ABBOTT-04P-163-0282872-00

PATIENT
  Sex: Male
  Weight: 93.07 kg

DRUGS (6)
  1. COLCHICINE [Suspect]
     Indication: GOUT
     Route: 048
     Dates: end: 20041201
  2. ACETYLSALICYLIC ACID [Concomitant]
     Indication: DRUG USE FOR UNKNOWN INDICATION
  3. NITROGLYCERIN [Concomitant]
     Indication: DRUG USE FOR UNKNOWN INDICATION
     Dosage: PATCH
  4. ALBUTEROL [Concomitant]
     Indication: WHEEZING
  5. THIAMINE [Concomitant]
     Indication: DRUG USE FOR UNKNOWN INDICATION
  6. METOLAZONE [Concomitant]
     Indication: DRUG USE FOR UNKNOWN INDICATION

REACTIONS (2)
  - PLEURAL EFFUSION [None]
  - ROAD TRAFFIC ACCIDENT [None]
